FAERS Safety Report 6423580-3 (Version None)
Quarter: 2009Q4

REPORT INFORMATION
  Report Type: 
  Country: None (occurrence: None)
  Receive Date: 20091102
  Receipt Date: 20091027
  Transmission Date: 20100525
  Serious: Yes (Hospitalization)
  Sender: FDA-Public Use
  Company Number: CHPA2009US20995

PATIENT
  Age: 87 Year
  Sex: Female

DRUGS (3)
  1. EX-LAX MAX STR LAX PILLS SENNA (NCH) [Suspect]
     Indication: CONSTIPATION
     Dosage: 50 MG, QD
     Route: 048
     Dates: start: 20090801
  2. WARFARIN SODIUM [Concomitant]
     Dosage: 2 MG, QD
     Dates: start: 20040101
  3. NEXIUM [Concomitant]
     Indication: HIATUS HERNIA
     Dosage: 10 MG, QD

REACTIONS (5)
  - ATRIAL FIBRILLATION [None]
  - COLITIS ISCHAEMIC [None]
  - COLONIC STENOSIS [None]
  - DRUG INEFFECTIVE [None]
  - HAEMATOCHEZIA [None]
